FAERS Safety Report 8390286 (Version 2)
Quarter: 2013Q1

REPORT INFORMATION
  Report Type: Report from Study
  Country: US (occurrence: US)
  Receive Date: 20120203
  Receipt Date: 20130103
  Transmission Date: 20140127
  Serious: Yes (Hospitalization)
  Sender: FDA-Public Use
  Company Number: PHHO2011US05873

PATIENT
  Age: 79 Year
  Sex: Male
  Weight: 108 kg

DRUGS (5)
  1. NAPROXEN [Suspect]
     Indication: OSTEOARTHRITIS
     Dosage: 500 MG, BID
     Dates: start: 20101202, end: 20110210
  2. OMEPRAZOLE [Suspect]
  3. PLACEBO [Suspect]
  4. ASPIRIN [Concomitant]
     Indication: PROPHYLAXIS
     Dosage: 81 MG, UNK
     Dates: start: 2004, end: 20110213
  5. PLAVIX [Concomitant]
     Indication: PROPHYLAXIS
     Dosage: 75 MG, UNK
     Dates: start: 2004, end: 20110213

REACTIONS (1)
  - Epistaxis [Recovered/Resolved]
